FAERS Safety Report 24220651 (Version 1)
Quarter: 2024Q3

REPORT INFORMATION
  Report Type: Spontaneous
  Country: US (occurrence: US)
  Receive Date: 20240818
  Receipt Date: 20240818
  Transmission Date: 20241017
  Serious: Yes (Death, Hospitalization)
  Sender: DR REDDYS
  Company Number: US-DRL-USA-LIT/USA/24/0011926

PATIENT
  Age: 44 Year
  Sex: Female

DRUGS (6)
  1. DOXORUBICIN [Suspect]
     Active Substance: DOXORUBICIN
     Indication: Malignant mediastinal neoplasm
     Dosage: 6 CYCLES
  2. CARBOPLATIN [Suspect]
     Active Substance: CARBOPLATIN
     Indication: Malignant mediastinal neoplasm
     Dosage: 1 CYCLE
  3. CYCLOPHOSPHAMIDE [Suspect]
     Active Substance: CYCLOPHOSPHAMIDE
     Indication: Malignant mediastinal neoplasm
     Dosage: 6 CYCLES
  4. CISPLATIN [Suspect]
     Active Substance: CISPLATIN
     Indication: Malignant mediastinal neoplasm
     Dosage: 6 CYCLES
  5. PACLITAXEL [Suspect]
     Active Substance: PACLITAXEL
     Indication: Malignant mediastinal neoplasm
     Dosage: 1 CYCLE
  6. PEMBROLIZUMAB [Suspect]
     Active Substance: PEMBROLIZUMAB
     Indication: Malignant mediastinal neoplasm
     Dosage: 2 CYCLES

REACTIONS (7)
  - Drug ineffective for unapproved indication [Fatal]
  - Septic shock [Fatal]
  - Renal failure [Fatal]
  - Cardiac dysfunction [Fatal]
  - Respiratory failure [Fatal]
  - Tumour invasion [Fatal]
  - Dependence on respirator [Fatal]
